FAERS Safety Report 8882882 (Version 1)
Quarter: 2012Q4

REPORT INFORMATION
  Report Type: 
  Country: US (occurrence: US)
  Receive Date: 20121102
  Receipt Date: 20121102
  Transmission Date: 20130627
  Serious: No
  Sender: FDA-Public Use
  Company Number: US-ASTRAZENECA-2011SE70635

PATIENT
  Age: 61 Year
  Sex: Male

DRUGS (20)
  1. CRESTOR [Suspect]
     Route: 048
  2. DOXYCYCLINE [Concomitant]
  3. ROBITUSSIN [Concomitant]
  4. PREDNISONE [Concomitant]
  5. ALBUTEROL [Concomitant]
  6. ASPIRIN [Concomitant]
  7. CLOPIDOGREL [Concomitant]
  8. COLCHICINE [Concomitant]
  9. FLEXERIL [Concomitant]
  10. VALIUM [Concomitant]
  11. LIDEX [Concomitant]
  12. FLUTICASONE [Concomitant]
  13. VICODIN ES [Concomitant]
  14. ATARAX [Concomitant]
  15. MOTRIN [Concomitant]
  16. LIDODERM [Concomitant]
  17. LOPRESSOR [Concomitant]
  18. NITROSTAT [Concomitant]
  19. BENICAR HCT [Concomitant]
  20. ALDACTONE [Concomitant]

REACTIONS (2)
  - Bronchitis [Unknown]
  - Chronic obstructive pulmonary disease [Unknown]
